FAERS Safety Report 7690996-7 (Version None)
Quarter: 2011Q3

REPORT INFORMATION
  Report Type: 
  Country: None (occurrence: None)
  Receive Date: 20110818
  Receipt Date: 20110810
  Transmission Date: 20111222
  Serious: Yes (Other)
  Sender: FDA-Public Use
  Company Number: US-ROCHE-719225

PATIENT
  Sex: Female

DRUGS (4)
  1. ACCUTANE [Suspect]
     Route: 048
     Dates: start: 19991229, end: 20000125
  2. ACCUTANE [Suspect]
     Route: 048
     Dates: start: 20000125, end: 20000322
  3. ACCUTANE [Suspect]
     Indication: ACNE
     Route: 048
     Dates: start: 19980727, end: 19990126
  4. ACCUTANE [Suspect]
     Route: 048
     Dates: start: 19990126, end: 19990528

REACTIONS (11)
  - EPISTAXIS [None]
  - BACK PAIN [None]
  - HYPOGLYCAEMIA [None]
  - HEADACHE [None]
  - BLOOD CHOLESTEROL INCREASED [None]
  - RECTAL POLYP [None]
  - COLITIS ULCERATIVE [None]
  - RASH [None]
  - INFLAMMATORY BOWEL DISEASE [None]
  - CHEILITIS [None]
  - ENDOMETRIOSIS [None]
